FAERS Safety Report 7420865-9 (Version None)
Quarter: 2011Q2

REPORT INFORMATION
  Report Type: 
  Country: None (occurrence: None)
  Receive Date: 20110418
  Receipt Date: 20110406
  Transmission Date: 20111010
  Serious: Yes (Hospitalization)
  Sender: FDA-Public Use
  Company Number: FR-ROCHE-770523

PATIENT
  Sex: Female

DRUGS (4)
  1. NEORECORMON [Concomitant]
     Dosage: EVERY OTHER WEEK
  2. PEGINTERFERON ALFA-2A [Suspect]
     Indication: HEPATITIS C
     Route: 058
     Dates: start: 20100607
  3. NEUPOGEN [Concomitant]
     Dosage: TOTAL DAILY DOSE: 30 MU
  4. RIBAVIRIN [Suspect]
     Indication: HEPATITIS C
     Route: 048
     Dates: start: 20100607

REACTIONS (1)
  - MALAISE [None]
